FAERS Safety Report 5478638-2 (Version None)
Quarter: 2007Q4

REPORT INFORMATION
  Report Type: 
  Country: None (occurrence: None)
  Receive Date: 20071005
  Receipt Date: 20070925
  Transmission Date: 20080405
  Serious: Yes (Death, Hospitalization)
  Sender: FDA-Public Use
  Company Number: MY-BRISTOL-MYERS SQUIBB COMPANY-13928015

PATIENT
  Age: 34 Year
  Sex: Female

DRUGS (3)
  1. EFAVIRENZ [Suspect]
     Route: 048
     Dates: start: 20020101
  2. STAVUDINE [Suspect]
     Dates: start: 20020101
  3. LAMIVUDINE [Suspect]
     Dates: start: 20020101

REACTIONS (4)
  - GASTROINTESTINAL HAEMORRHAGE [None]
  - LACTIC ACIDOSIS [None]
  - MULTI-ORGAN FAILURE [None]
  - PREGNANCY [None]
